FAERS Safety Report 5643235-2 (Version None)
Quarter: 2008Q1

REPORT INFORMATION
  Report Type: 
  Country: None (occurrence: None)
  Receive Date: 20080226
  Receipt Date: 20080215
  Transmission Date: 20080703
  Serious: Yes (Other)
  Sender: FDA-Public Use
  Company Number: GXKR2008SA01717

PATIENT
  Sex: Male

DRUGS (4)
  1. CYCLOSPORINE [Suspect]
     Indication: IMMUNOSUPPRESSION
     Dates: start: 19920310, end: 19961201
  2. AZATHIOPRINE [Concomitant]
  3. PREDNISONE TAB [Concomitant]
  4. MYCOPHENOLATE MOFETIL [Concomitant]

REACTIONS (9)
  - BLOOD CREATININE INCREASED [None]
  - CHOLANGITIS SCLEROSING [None]
  - DRUG TOXICITY [None]
  - KIDNEY FIBROSIS [None]
  - PROTEINURIA [None]
  - RENAL IMPAIRMENT [None]
  - RENAL ISCHAEMIA [None]
  - RENAL TUBULAR ATROPHY [None]
  - TRANSPLANT REJECTION [None]
